FAERS Safety Report 9774192 (Version 1)
Quarter: 2013Q4

REPORT INFORMATION
  Report Type: Spontaneous
  Country: US (occurrence: US)
  Receive Date: 20131220
  Receipt Date: 20131220
  Transmission Date: 20140711
  Serious: No
  Sender: FDA-Public Use
  Company Number: US-009507513-1312USA009296

PATIENT
  Sex: Female

DRUGS (1)
  1. ZETIA [Suspect]
     Indication: BLOOD CHOLESTEROL
     Dosage: DOSE: 1, DAILY
     Route: 048

REACTIONS (2)
  - Hepatic pain [Unknown]
  - Pain [Unknown]
